FAERS Safety Report 8997468 (Version 1)
Quarter: 2013Q1

REPORT INFORMATION
  Report Type: Spontaneous
  Country: US (occurrence: US)
  Receive Date: 20130104
  Receipt Date: 20130104
  Transmission Date: 20140127
  Serious: Yes (Other)
  Sender: FDA-Public Use
  Company Number: CHPA2012US025989

PATIENT
  Age: 68 Year
  Sex: Male

DRUGS (1)
  1. MAALOX ADV MAXIMUM STRENGTH ANTACID/ANTIGAS [Suspect]
     Indication: PROPHYLAXIS
     Dosage: 6 TO 9 TSP, BID, PRN
     Route: 048
     Dates: end: 201212

REACTIONS (3)
  - Rotator cuff syndrome [Recovered/Resolved]
  - Off label use [Unknown]
  - Overdose [Unknown]
